FAERS Safety Report 15390046 (Version 2)
Quarter: 2019Q1

REPORT INFORMATION
  Report Type: Report from Study
  Country: US (occurrence: US)
  Receive Date: 20180917
  Receipt Date: 20190102
  Transmission Date: 20190417
  Serious: Yes (Death)
  Sender: FDA-Public Use
  Company Number: US-SUN PHARMACEUTICAL INDUSTRIES LTD-2016US-183403

PATIENT
  Age: 59 Year
  Sex: Male
  Weight: 92.2 kg

DRUGS (23)
  1. PROZAC [Suspect]
     Active Substance: FLUOXETINE HYDROCHLORIDE
     Indication: DEPRESSION
     Dosage: 60 MG, QD
     Route: 048
     Dates: start: 20140610
  2. OXYCODONE [Concomitant]
     Active Substance: OXYCODONE
     Indication: BACK PAIN
     Dosage: 5 MG, TID
     Route: 048
     Dates: start: 20150901
  3. BLINDED ETANERCEPT INJECTION (STUDY NO. MK-3222-011) [Suspect]
     Active Substance: ETANERCEPT
     Indication: PSORIASIS
     Dosage: UNK (EVERY 12 WEEKS)
     Route: 058
     Dates: start: 20150519, end: 20151208
  4. ATENOLOL. [Concomitant]
     Active Substance: ATENOLOL
     Indication: HYPERTENSION
  5. BENADRYL [Concomitant]
     Active Substance: DIPHENHYDRAMINE HYDROCHLORIDE
     Indication: SEASONAL ALLERGY
     Dosage: UNK
     Route: 065
     Dates: start: 197401
  6. CLONIDINE. [Concomitant]
     Active Substance: CLONIDINE
     Indication: HYPERTENSION
     Dosage: UNK
     Route: 065
     Dates: start: 20140327
  7. BLINDED ETANERCEPT INJECTION (STUDY NO. MK-3222-011) [Suspect]
     Active Substance: ETANERCEPT
     Indication: PSORIASIS
     Dosage: UNK (EVERY 12 WEEKS)
     Route: 058
     Dates: start: 20150519, end: 20151208
  8. BLINDED MK-3222 INJECTION [Suspect]
     Active Substance: TILDRAKIZUMAB
     Indication: PSORIASIS
     Dosage: UNK (EVERY 12 WEEKS)
     Route: 058
     Dates: start: 20150519, end: 20151208
  9. BLINDED MK-3222 PLACEBO [Suspect]
     Active Substance: TILDRAKIZUMAB
     Indication: PSORIASIS
     Dosage: UNK (EVERY 12 WEEKS)
     Route: 058
     Dates: start: 20150519, end: 20151208
  10. AMITRIPTYLINE HYDROCHLORIDE. [Concomitant]
     Active Substance: AMITRIPTYLINE HYDROCHLORIDE
     Indication: HEADACHE
     Dosage: UNK
     Route: 065
     Dates: start: 20140812
  11. ANTACID [Concomitant]
     Active Substance: ALUMINUM HYDROXIDE\CALCIUM CARBONATE\DIMETHICONE\MAGNESIUM HYDROXIDE
     Indication: GASTROOESOPHAGEAL REFLUX DISEASE
  12. FLOMAX [Concomitant]
     Active Substance: TAMSULOSIN HYDROCHLORIDE
     Indication: PRODUCT USED FOR UNKNOWN INDICATION
     Dosage: 0.4 MILLIGRAM, QD
     Route: 065
     Dates: start: 201411
  13. LISINOPRIL. [Concomitant]
     Active Substance: LISINOPRIL
     Indication: HYPERTENSION
     Dosage: 25 MG, QD
     Route: 048
     Dates: start: 201505
  14. BLINDED ETANERCEPT PLACEBO [Suspect]
     Active Substance: ETANERCEPT
     Indication: PSORIASIS
     Dosage: UNK (EVERY 12 WEEKS)
     Route: 058
     Dates: start: 20150519, end: 20151208
  15. ANTACID [Concomitant]
     Active Substance: ALUMINUM HYDROXIDE\CALCIUM CARBONATE\DIMETHICONE\MAGNESIUM HYDROXIDE
     Indication: DYSPEPSIA
     Dosage: UNK
     Route: 065
     Dates: start: 198001
  16. PRINIVIL [Concomitant]
     Active Substance: LISINOPRIL
     Indication: PRODUCT USED FOR UNKNOWN INDICATION
     Dosage: 25 MG, QD
     Route: 048
     Dates: start: 201505
  17. PSYLLIUM SEED (FIBER THERAPY) [Concomitant]
     Indication: CONSTIPATION
     Dosage: 1 DOSAGE FORM, QD
     Route: 048
     Dates: start: 20140201
  18. XANAX [Concomitant]
     Active Substance: ALPRAZOLAM
     Indication: ANXIETY
     Dosage: UNK
     Route: 065
     Dates: start: 201311
  19. BLINDED MK-3222 INJECTION [Suspect]
     Active Substance: TILDRAKIZUMAB
     Indication: PSORIASIS
     Dosage: UNK (EVERY 12 WEEKS)
     Route: 058
     Dates: start: 20150519, end: 20151208
  20. CYCLOBENZAPRINE. [Suspect]
     Active Substance: CYCLOBENZAPRINE
     Indication: BACK PAIN
     Dosage: 10 MG, TID
     Route: 048
     Dates: start: 20150506
  21. ATENOLOL. [Concomitant]
     Active Substance: ATENOLOL
     Indication: HEADACHE
     Dosage: UNK
     Route: 065
     Dates: start: 20141003
  22. KROGER HEMORRHOIDAL [Concomitant]
     Indication: HAEMORRHOIDS
     Dosage: UNK
     Route: 065
     Dates: start: 201311
  23. QUETIAPINE FUMARATE. [Concomitant]
     Active Substance: QUETIAPINE FUMARATE
     Indication: SOMNOLENCE
     Dosage: 2000 MG, QD
     Route: 048
     Dates: start: 20151001

REACTIONS (1)
  - Toxicity to various agents [Fatal]

NARRATIVE: CASE EVENT DATE: 20151230
